FAERS Safety Report 9780946 (Version 5)
Quarter: 2014Q2

REPORT INFORMATION
  Report Type: Spontaneous
  Country: US (occurrence: US)
  Receive Date: 20131224
  Receipt Date: 20140508
  Transmission Date: 20141212
  Serious: Yes (Hospitalization, Disabling, Other)
  Sender: FDA-Public Use
  Company Number: US-009507513-1202USA00561

PATIENT
  Sex: Male
  Weight: 91.79 kg

DRUGS (2)
  1. PROPECIA [Suspect]
     Indication: ANDROGENETIC ALOPECIA
     Dosage: 1 MG, QD
     Route: 048
     Dates: start: 20040527
  2. PROPECIA [Suspect]
     Indication: HAIR TRANSPLANT

REACTIONS (50)
  - Bipolar disorder [Not Recovered/Not Resolved]
  - Muscle rupture [Unknown]
  - Loss of consciousness [Unknown]
  - Joint dislocation [Unknown]
  - Surgery [Unknown]
  - Inner ear disorder [Unknown]
  - Back injury [Unknown]
  - Cognitive disorder [Not Recovered/Not Resolved]
  - Bone operation [Unknown]
  - Pelvic fracture [Unknown]
  - Tendon injury [Unknown]
  - Compartment syndrome [Unknown]
  - Neuralgia [Unknown]
  - Appendicectomy [Unknown]
  - Hernia [Unknown]
  - Muscle spasms [Unknown]
  - Constipation [Unknown]
  - Liver function test abnormal [Unknown]
  - Hyperlipidaemia [Unknown]
  - Urinary retention [Recovering/Resolving]
  - Contusion [Unknown]
  - Intervertebral disc degeneration [Unknown]
  - Intervertebral disc protrusion [Unknown]
  - Radiculitis lumbosacral [Unknown]
  - Viral upper respiratory tract infection [Unknown]
  - Bronchitis [Unknown]
  - Breast mass [Unknown]
  - High density lipoprotein decreased [Unknown]
  - Vomiting [Unknown]
  - Fall [Unknown]
  - Adverse drug reaction [Unknown]
  - Hypoventilation [Recovered/Resolved]
  - Anxiety [Unknown]
  - Limb injury [Unknown]
  - Blood creatine phosphokinase MB increased [Unknown]
  - Pain [Not Recovered/Not Resolved]
  - Pulmonary oedema [Unknown]
  - Head injury [Unknown]
  - Hypoxia [Recovered/Resolved]
  - Spinal osteoarthritis [Unknown]
  - Tendon operation [Unknown]
  - Ejaculation disorder [Unknown]
  - Sexual dysfunction [Not Recovered/Not Resolved]
  - Depression [Unknown]
  - Erectile dysfunction [Unknown]
  - Groin pain [Unknown]
  - Low density lipoprotein increased [Unknown]
  - Blood triglycerides decreased [Unknown]
  - Gynaecomastia [Unknown]
  - Rash macular [Unknown]
